FAERS Safety Report 18496845 (Version 1)
Quarter: 2020Q4

REPORT INFORMATION
  Report Type: Report from Study
  Country: US (occurrence: US)
  Receive Date: 20201112
  Receipt Date: 20201112
  Transmission Date: 20210114
  Serious: Yes (Hospitalization)
  Sender: FDA-Public Use
  Company Number: US-JNJFOC-20201002781

PATIENT
  Age: 14 Year
  Sex: Female
  Weight: 45.6 kg

DRUGS (56)
  1. RANITIDINE. [Concomitant]
     Active Substance: RANITIDINE
     Indication: ABDOMINAL PAIN
     Dates: start: 20150714, end: 20150821
  2. KEFLEX [Concomitant]
     Active Substance: CEPHALEXIN
     Indication: URINARY TRACT INFECTION
     Route: 065
     Dates: start: 20090623, end: 20090703
  3. LACTOBACILLUS [Concomitant]
     Active Substance: LACTOBACILLUS ACIDOPHILUS
     Indication: OVERGROWTH BACTERIAL
     Route: 065
     Dates: start: 20110201, end: 20140210
  4. ZOSYN [Concomitant]
     Active Substance: PIPERACILLIN SODIUM\TAZOBACTAM SODIUM
     Dates: start: 20120123, end: 20120124
  5. VORICONAZOLE. [Concomitant]
     Active Substance: VORICONAZOLE
     Indication: VASCULAR DEVICE INFECTION
     Route: 065
     Dates: start: 20150711, end: 20150805
  6. CISAPRIDE [Suspect]
     Active Substance: CISAPRIDE
     Indication: GASTROOESOPHAGEAL REFLUX DISEASE
     Route: 048
     Dates: start: 20090424
  7. GABAPENTIN. [Concomitant]
     Active Substance: GABAPENTIN
     Indication: ABDOMINAL PAIN
     Route: 065
     Dates: start: 20090402
  8. FURADANTIN [Concomitant]
     Active Substance: NITROFURANTOIN
     Indication: OVERGROWTH BACTERIAL
     Route: 065
     Dates: start: 20090402, end: 20110215
  9. ZOSYN [Concomitant]
     Active Substance: PIPERACILLIN SODIUM\TAZOBACTAM SODIUM
     Indication: SEPSIS
     Route: 065
     Dates: start: 20110724, end: 20110808
  10. NITROFURANTOIN. [Concomitant]
     Active Substance: NITROFURANTOIN
     Dates: start: 20110901
  11. LACTATED RINGERS SOLUTION [Concomitant]
     Active Substance: CALCIUM CHLORIDE\POTASSIUM CHLORIDE\SODIUM CHLORIDE\SODIUM LACTATE
     Indication: ELECTROLYTE DEPLETION
     Route: 065
     Dates: start: 20130618, end: 20130626
  12. ACETAMINOPHEN. [Concomitant]
     Active Substance: ACETAMINOPHEN
     Indication: ABDOMINAL PAIN
     Route: 065
     Dates: start: 20160111, end: 20160125
  13. FUROSEMIDE. [Concomitant]
     Active Substance: FUROSEMIDE
     Indication: ABDOMINAL PAIN
     Route: 065
     Dates: start: 20150716, end: 20150717
  14. MOTRIN [Concomitant]
     Active Substance: IBUPROFEN
     Indication: PYREXIA
     Route: 065
     Dates: start: 20200518, end: 20200520
  15. PERIACTIN [Concomitant]
     Active Substance: CYPROHEPTADINE HYDROCHLORIDE
     Indication: RETCHING
     Route: 065
     Dates: start: 20090402
  16. GABAPENTIN. [Concomitant]
     Active Substance: GABAPENTIN
     Dates: start: 20110201, end: 20130606
  17. LANSOPRAZOLE. [Concomitant]
     Active Substance: LANSOPRAZOLE
     Indication: GASTROOESOPHAGEAL REFLUX DISEASE
     Route: 065
     Dates: start: 20110201, end: 20140210
  18. ZOSYN [Concomitant]
     Active Substance: PIPERACILLIN SODIUM\TAZOBACTAM SODIUM
     Dates: start: 20130531, end: 20130601
  19. OMEPRAZOLE. [Concomitant]
     Active Substance: OMEPRAZOLE
     Indication: GASTROOESOPHAGEAL REFLUX DISEASE
     Route: 065
     Dates: start: 20090402
  20. CLOTRIMAZOLE. [Concomitant]
     Active Substance: CLOTRIMAZOLE
     Indication: VAGINAL INFECTION
     Route: 065
     Dates: start: 20130225, end: 20130226
  21. METRONIDAZOLE. [Concomitant]
     Active Substance: METRONIDAZOLE
     Dates: start: 20130621
  22. AMOXICILLIN. [Concomitant]
     Active Substance: AMOXICILLIN
     Dates: start: 20120308, end: 20120318
  23. LOVENOX [Concomitant]
     Active Substance: ENOXAPARIN SODIUM
     Indication: THROMBOSIS PROPHYLAXIS
     Dates: start: 20110303
  24. CEFTRIAXONE. [Concomitant]
     Active Substance: CEFTRIAXONE
     Indication: URINARY TRACT INFECTION
     Route: 065
     Dates: start: 20110630, end: 20110702
  25. OMEPRAZOLE. [Concomitant]
     Active Substance: OMEPRAZOLE
     Dates: start: 20130619, end: 20141201
  26. DEXTROSE. [Concomitant]
     Active Substance: DEXTROSE
     Indication: DEHYDRATION
     Route: 065
     Dates: start: 20130618, end: 20130626
  27. SEPTRA [Concomitant]
     Active Substance: SULFAMETHOXAZOLE\TRIMETHOPRIM
     Indication: OVERGROWTH BACTERIAL
     Route: 065
     Dates: start: 20130606, end: 20130626
  28. CISAPRIDE [Suspect]
     Active Substance: CISAPRIDE
     Indication: GASTROINTESTINAL MOTILITY DISORDER
     Route: 048
     Dates: start: 20190926
  29. RANITIDINE. [Concomitant]
     Active Substance: RANITIDINE
     Indication: VOMITING
  30. METRONIDAZOLE. [Concomitant]
     Active Substance: METRONIDAZOLE
     Dates: start: 20150110, end: 20150113
  31. MEROPENEM. [Concomitant]
     Active Substance: MEROPENEM
     Indication: DEVICE RELATED SEPSIS
     Route: 065
     Dates: start: 20110925, end: 20111010
  32. MEROPENEM. [Concomitant]
     Active Substance: MEROPENEM
     Indication: NAUSEA
     Dates: start: 20120116, end: 20120118
  33. MICAFUNGIN. [Concomitant]
     Active Substance: MICAFUNGIN SODIUM
     Dates: start: 20120118, end: 20120201
  34. MICAFUNGIN. [Concomitant]
     Active Substance: MICAFUNGIN SODIUM
     Dates: start: 20130216, end: 20130302
  35. PERIACTIN [Concomitant]
     Active Substance: CYPROHEPTADINE HYDROCHLORIDE
     Indication: DECREASED APPETITE
     Dates: start: 20091215, end: 20131216
  36. GABAPENTIN. [Concomitant]
     Active Substance: GABAPENTIN
     Dates: start: 20130619, end: 20141201
  37. BACTRIM [Concomitant]
     Active Substance: SULFAMETHOXAZOLE\TRIMETHOPRIM
     Dates: start: 20110910, end: 20131216
  38. METRONIDAZOLE. [Concomitant]
     Active Substance: METRONIDAZOLE
     Dates: start: 20110215, end: 20120124
  39. METRONIDAZOLE. [Concomitant]
     Active Substance: METRONIDAZOLE
     Dates: start: 20120502, end: 20120526
  40. FLUCONAZOLE. [Concomitant]
     Active Substance: FLUCONAZOLE
     Indication: URINARY TRACT INFECTION FUNGAL
     Route: 065
     Dates: start: 20110630, end: 20110713
  41. NITROFURANTOIN. [Concomitant]
     Active Substance: NITROFURANTOIN
     Indication: INFECTION PROPHYLAXIS
     Route: 065
     Dates: start: 20110303, end: 20110306
  42. VORICONAZOLE. [Concomitant]
     Active Substance: VORICONAZOLE
     Indication: VOMITING
  43. FLUCONAZOLE. [Concomitant]
     Active Substance: FLUCONAZOLE
     Dates: start: 20200520, end: 20200603
  44. CEFTRIAXONE. [Concomitant]
     Active Substance: CEFTRIAXONE
     Dates: start: 20120109, end: 20120116
  45. AMBISOME [Concomitant]
     Active Substance: AMPHOTERICIN B
     Indication: SYSTEMIC CANDIDA
     Route: 065
     Dates: start: 20130607, end: 20130621
  46. TYLENOL [Concomitant]
     Active Substance: ACETAMINOPHEN
     Indication: PYREXIA
     Route: 065
     Dates: start: 20200518, end: 20200520
  47. BACTRIM [Concomitant]
     Active Substance: SULFAMETHOXAZOLE\TRIMETHOPRIM
     Indication: OVERGROWTH BACTERIAL
     Route: 065
     Dates: start: 20090402, end: 20110215
  48. METRONIDAZOLE. [Concomitant]
     Active Substance: METRONIDAZOLE
     Indication: OVERGROWTH BACTERIAL
     Route: 065
     Dates: start: 20090820, end: 20110215
  49. AMOXICILLIN. [Concomitant]
     Active Substance: AMOXICILLIN
     Indication: OVERGROWTH BACTERIAL
     Route: 065
     Dates: start: 20110115, end: 20110130
  50. ZOSYN [Concomitant]
     Active Substance: PIPERACILLIN SODIUM\TAZOBACTAM SODIUM
     Dates: start: 20130214, end: 20130217
  51. DOPAMINE [Concomitant]
     Active Substance: DOPAMINE HYDROCHLORIDE
     Indication: DEVICE RELATED SEPSIS
     Route: 065
     Dates: start: 20110925, end: 20110927
  52. MICAFUNGIN. [Concomitant]
     Active Substance: MICAFUNGIN SODIUM
     Indication: DEVICE RELATED SEPSIS
     Route: 065
     Dates: start: 20110925, end: 20110930
  53. MICAFUNGIN. [Concomitant]
     Active Substance: MICAFUNGIN SODIUM
     Dates: start: 20130601, end: 20130607
  54. OMNICEF                            /00497602/ [Concomitant]
     Active Substance: CEFOTAXIME SODIUM
     Indication: URINARY TRACT INFECTION
     Route: 065
     Dates: start: 20120914, end: 20120928
  55. LOPERAMIDE [Concomitant]
     Active Substance: LOPERAMIDE
     Indication: DIARRHOEA
     Route: 065
     Dates: start: 20130606
  56. VORICONAZOLE. [Concomitant]
     Active Substance: VORICONAZOLE
     Indication: ABDOMINAL PAIN

REACTIONS (1)
  - Intestinal pseudo-obstruction [Recovered/Resolved]

NARRATIVE: CASE EVENT DATE: 20190922
